FAERS Safety Report 7369458-2 (Version None)
Quarter: 2011Q1

REPORT INFORMATION
  Report Type: 
  Country: None (occurrence: None)
  Receive Date: 20110321
  Receipt Date: 20110321
  Transmission Date: 20110831
  Serious: No
  Sender: FDA-Public Use
  Company Number: None

PATIENT
  Sex: Female

DRUGS (1)
  1. ISOVUE-370 [Suspect]
     Indication: COMPUTERISED TOMOGRAM
     Dosage: 75ML ONCE I.V.
     Route: 042
     Dates: start: 20110314

REACTIONS (4)
  - DIARRHOEA [None]
  - DIZZINESS [None]
  - NAUSEA [None]
  - ABDOMINAL PAIN UPPER [None]
